FAERS Safety Report 6646290-6 (Version None)
Quarter: 2010Q1

REPORT INFORMATION
  Report Type: 
  Country: None (occurrence: None)
  Receive Date: 20100323
  Receipt Date: 20100316
  Transmission Date: 20100710
  Serious: No
  Sender: FDA-Public Use
  Company Number: EC-ROCHE-691399

PATIENT
  Sex: Female
  Weight: 47 kg

DRUGS (1)
  1. ISOTRETINOIN [Suspect]
     Indication: ACNE
     Dosage: FREQUENCY:QD:DAILY
     Route: 048
     Dates: start: 20090201, end: 20090601

REACTIONS (2)
  - NO ADVERSE EVENT [None]
  - PREGNANCY [None]
